FAERS Safety Report 5310457-X (Version None)
Quarter: 2007Q2

REPORT INFORMATION
  Report Type: 
  Country: None (occurrence: None)
  Receive Date: 20070427
  Receipt Date: 20070417
  Transmission Date: 20071010
  Serious: Yes (Hospitalization, Other)
  Sender: FDA-Public Use
  Company Number: US-PFIZER INC-2007032101

PATIENT
  Age: 55 Year
  Sex: Female

DRUGS (9)
  1. CHANTIX [Suspect]
     Dosage: DAILY DOSE:.5MG
     Route: 048
  2. CHANTIX [Suspect]
     Route: 048
  3. CHANTIX [Suspect]
     Route: 048
  4. HYDROCHLOROTHIAZIDE/OLMESARTAN [Suspect]
     Route: 048
  5. LOPRESSOR [Concomitant]
     Indication: HYPERTENSION
     Route: 048
  6. PLAQUENIL [Concomitant]
     Indication: SYSTEMIC LUPUS ERYTHEMATOSUS
     Route: 048
  7. PREDNISONE TAB [Concomitant]
     Indication: SYSTEMIC LUPUS ERYTHEMATOSUS
  8. THIAMINE [Concomitant]
     Route: 048
  9. VITAMIN CAP [Concomitant]
     Route: 048

REACTIONS (7)
  - BLOOD PRESSURE INCREASED [None]
  - COMA [None]
  - DRY MOUTH [None]
  - HYPONATRAEMIA [None]
  - IRON DEFICIENCY ANAEMIA [None]
  - LOSS OF CONSCIOUSNESS [None]
  - NAUSEA [None]
